FAERS Safety Report 19043088 (Version 1)
Quarter: 2021Q1

REPORT INFORMATION
  Report Type: Spontaneous
  Country: US (occurrence: US)
  Receive Date: 20210323
  Receipt Date: 20210323
  Transmission Date: 20210420
  Serious: No
  Sender: FDA-Public Use
  Company Number: US-ALLERGAN-2103903US

PATIENT
  Age: 4 Decade
  Sex: Male

DRUGS (2)
  1. DURYSTA [Suspect]
     Active Substance: BIMATOPROST
     Indication: GLAUCOMA
     Dosage: 10 ?G, SINGLE
     Route: 031
  2. COMBIGAN [Concomitant]
     Active Substance: BRIMONIDINE TARTRATE\TIMOLOL MALEATE

REACTIONS (2)
  - Complication associated with device [Unknown]
  - Device malfunction [Unknown]
